FAERS Safety Report 9649861 (Version 2)
Quarter: 2013Q4

REPORT INFORMATION
  Report Type: Spontaneous
  Country: US (occurrence: US)
  Receive Date: 20131028
  Receipt Date: 20131028
  Transmission Date: 20140711
  Serious: Yes (Death, Other)
  Sender: FDA-Public Use
  Company Number: US-NAPPMUNDI-USA-2011-0074312

PATIENT
  Age: 26 Year
  Sex: Male

DRUGS (4)
  1. OXYCONTIN TABLETS [Suspect]
     Indication: DRUG ABUSE
  2. OXYCONTIN TABLETS [Suspect]
     Indication: HAND FRACTURE
  3. FENTANYL [Suspect]
     Indication: DRUG ABUSE
  4. COCAINE [Suspect]
     Indication: DRUG ABUSE

REACTIONS (3)
  - Overdose [Fatal]
  - Drug dependence [Unknown]
  - Substance abuse [Unknown]
